FAERS Safety Report 8726953 (Version 2)
Quarter: 2015Q2

REPORT INFORMATION
  Report Type: Report from Study
  Country: US (occurrence: US)
  Receive Date: 20120816
  Receipt Date: 20150416
  Transmission Date: 20150821
  Serious: Yes (Other)
  Sender: FDA-Public Use
  Company Number: US-ROCHE-1100926

PATIENT
  Sex: Male

DRUGS (6)
  1. XYLOCAINE [Concomitant]
     Active Substance: LIDOCAINE HYDROCHLORIDE
  2. ACTIVASE [Suspect]
     Active Substance: ALTEPLASE
     Indication: ACUTE MYOCARDIAL INFARCTION
     Route: 065
  3. NITROGLYCERINE [Concomitant]
     Active Substance: NITROGLYCERIN
     Dosage: LOW DOSE
     Route: 065
  4. MORPHINE [Concomitant]
     Active Substance: MORPHINE
  5. NORMAL SALINE [Concomitant]
     Active Substance: SODIUM CHLORIDE
     Dosage: 100 TO 150 CC PER HOUR
     Route: 065
  6. HEPARIN [Concomitant]
     Active Substance: HEPARIN SODIUM
     Route: 065

REACTIONS (6)
  - Arrhythmia [Unknown]
  - Chest pain [Unknown]
  - Tachycardia [Unknown]
  - Hypotension [Unknown]
  - Hypertension [Unknown]
  - Electrocardiogram ST segment elevation [Unknown]
